FAERS Safety Report 5669185-3 (Version None)
Quarter: 2008Q1

REPORT INFORMATION
  Report Type: 
  Country: None (occurrence: None)
  Receive Date: 20080317
  Receipt Date: 20080305
  Transmission Date: 20080703
  Serious: Yes (Hospitalization)
  Sender: FDA-Public Use
  Company Number: JP-BAYER-200711047BYL

PATIENT
  Age: 88 Year
  Sex: Female

DRUGS (6)
  1. ASPIRIN [Suspect]
     Indication: LACUNAR INFARCTION
     Dosage: TOTAL DAILY DOSE: 100 MG  UNIT DOSE: 100 MG
     Route: 048
     Dates: start: 20050405
  2. PRORENAL [Suspect]
     Indication: LUMBAR SPINAL STENOSIS
     Dosage: TOTAL DAILY DOSE: 10 ?G  UNIT DOSE: 5 ?G
     Route: 048
     Dates: start: 20070523
  3. HYPEN [Concomitant]
     Dosage: TOTAL DAILY DOSE: 400 MG  UNIT DOSE: 200 MG
     Route: 048
  4. ADALAT [Concomitant]
     Indication: HYPERTENSION
     Dosage: TOTAL DAILY DOSE: 40 MG  UNIT DOSE: 20 MG
     Route: 048
     Dates: start: 20050111
  5. DIOVAN [Concomitant]
     Indication: HYPERTENSION
     Dosage: TOTAL DAILY DOSE: 160 MG  UNIT DOSE: 80 MG
     Route: 048
     Dates: start: 20050111
  6. GASTER D [Concomitant]
     Indication: GASTRIC MUCOSAL LESION
     Dosage: TOTAL DAILY DOSE: 20 MG  UNIT DOSE: 20 MG
     Route: 048
     Dates: start: 20060206

REACTIONS (2)
  - HAEMORRHAGIC ANAEMIA [None]
  - SMALL INTESTINAL HAEMORRHAGE [None]
